FAERS Safety Report 15669788 (Version 1)
Quarter: 2018Q4

REPORT INFORMATION
  Report Type: Spontaneous
  Country: US (occurrence: US)
  Receive Date: 20181129
  Receipt Date: 20181129
  Transmission Date: 20190205
  Serious: No
  Sender: FDA-Public Use
  Company Number: US-ASTRAZENECA-2018SF47528

PATIENT
  Age: 69 Year
  Sex: Female
  Weight: 56.7 kg

DRUGS (3)
  1. IBRANCE [Suspect]
     Active Substance: PALBOCICLIB
  2. MELOXICAM. [Concomitant]
     Active Substance: MELOXICAM
     Indication: MUSCULOSKELETAL CHEST PAIN
     Dates: start: 201707
  3. FASLODEX [Suspect]
     Active Substance: FULVESTRANT
     Indication: BREAST CANCER METASTATIC
     Route: 030
     Dates: start: 201707

REACTIONS (11)
  - Pain in extremity [Recovering/Resolving]
  - Arthritis [Recovering/Resolving]
  - Injection site hypersensitivity [Not Recovered/Not Resolved]
  - Injection site discomfort [Not Recovered/Not Resolved]
  - Spinal pain [Recovered/Resolved]
  - Back pain [Unknown]
  - Injection site pain [Unknown]
  - Musculoskeletal discomfort [Unknown]
  - Muscle spasms [Not Recovered/Not Resolved]
  - Bone pain [Unknown]
  - Pain [Unknown]

NARRATIVE: CASE EVENT DATE: 201707
